FAERS Safety Report 6806209-1 (Version None)
Quarter: 2010Q2

REPORT INFORMATION
  Report Type: 
  Country: None (occurrence: None)
  Receive Date: 20100629
  Receipt Date: 20100621
  Transmission Date: 20101027
  Serious: Yes (Hospitalization, Other)
  Sender: FDA-Public Use
  Company Number: US-MERCK-0911USA01694

PATIENT
  Age: 77 Year
  Sex: Female
  Weight: 47 kg

DRUGS (2)
  1. FOSAMAX [Suspect]
     Indication: OSTEOPOROSIS
     Route: 048
     Dates: start: 20020328, end: 20090414
  2. NOLVADEX [Concomitant]
     Indication: BREAST CANCER STAGE II
     Route: 065

REACTIONS (54)
  - ALLERGIC SINUSITIS [None]
  - ANAEMIA MACROCYTIC [None]
  - ARTERIOSCLEROSIS CORONARY ARTERY [None]
  - ATRIOVENTRICULAR BLOCK FIRST DEGREE [None]
  - AZOTAEMIA [None]
  - BACK DISORDER [None]
  - BIPOLAR I DISORDER [None]
  - BLOOD CREATININE INCREASED [None]
  - BLOOD ELECTROLYTES ABNORMAL [None]
  - BLOOD UREA INCREASED [None]
  - BRONCHOSPASM [None]
  - BULLOUS LUNG DISEASE [None]
  - CHRONIC OBSTRUCTIVE PULMONARY DISEASE [None]
  - CONVULSION [None]
  - CORONARY ARTERY EMBOLISM [None]
  - DENTAL CARIES [None]
  - DILATATION VENTRICULAR [None]
  - DIVERTICULITIS [None]
  - DRUG HYPERSENSITIVITY [None]
  - ELECTROCARDIOGRAM ST SEGMENT ABNORMAL [None]
  - ESSENTIAL HYPERTENSION [None]
  - GASTRITIS [None]
  - GASTROENTERITIS [None]
  - HAEMATOCRIT DECREASED [None]
  - HAEMOGLOBIN DECREASED [None]
  - HIATUS HERNIA [None]
  - HYPERLIPIDAEMIA [None]
  - HYPOAESTHESIA ORAL [None]
  - HYPOVOLAEMIA [None]
  - IMPAIRED HEALING [None]
  - INFECTION [None]
  - IRON DEFICIENCY ANAEMIA [None]
  - JAW DISORDER [None]
  - LEUKOCYTOSIS [None]
  - LYMPHOEDEMA [None]
  - MALNUTRITION [None]
  - MUSCULOSKELETAL DISORDER [None]
  - MYELODYSPLASTIC SYNDROME [None]
  - OCCULT BLOOD POSITIVE [None]
  - OSTEOARTHRITIS [None]
  - OSTEOMYELITIS [None]
  - OSTEONECROSIS OF JAW [None]
  - PULMONARY EMBOLISM [None]
  - PULMONARY FIBROSIS [None]
  - PULMONARY HYPERTENSION [None]
  - PYELONEPHRITIS ACUTE [None]
  - RENAL FAILURE ACUTE [None]
  - RHINITIS ALLERGIC [None]
  - RIGHT ATRIAL DILATATION [None]
  - TOOTH LOSS [None]
  - TRICUSPID VALVE INCOMPETENCE [None]
  - VAGINAL DISORDER [None]
  - VASCULAR CALCIFICATION [None]
  - WEIGHT DECREASED [None]
